FAERS Safety Report 7364036-3 (Version None)
Quarter: 2011Q1

REPORT INFORMATION
  Report Type: 
  Country: None (occurrence: None)
  Receive Date: 20110321
  Receipt Date: 20110307
  Transmission Date: 20110831
  Serious: Yes (Other)
  Sender: FDA-Public Use
  Company Number: PHHY2011FR19526

PATIENT
  Age: 72 Year
  Sex: Male

DRUGS (2)
  1. RASILEZ HCT [Suspect]
     Dosage: 300/12.5 MG QD
     Route: 048
     Dates: start: 20101001
  2. RASILEZ HCT [Suspect]
     Dosage: 150/12.5 MG QD
     Route: 048
     Dates: start: 20100901, end: 20101001

REACTIONS (2)
  - PROTEINURIA [None]
  - NEPHROTIC SYNDROME [None]
